FAERS Safety Report 5093591-1 (Version None)
Quarter: 2006Q3

REPORT INFORMATION
  Report Type: 
  Country: None (occurrence: None)
  Receive Date: 20060829
  Receipt Date: 20060816
  Transmission Date: 20061208
  Serious: Yes (Other)
  Sender: FDA-Public Use
  Company Number: 2006BH012914

PATIENT
  Age: 77 Year
  Sex: Male

DRUGS (4)
  1. TAZICEF [Suspect]
     Indication: MENINGITIS
     Dosage: 2 GM;EVERY 8 HR;IV
     Route: 042
  2. VANCOMYCIN [Concomitant]
  3. HYDROCHLORIDE [Concomitant]
  4. GENTAMICIN SULFATE [Concomitant]

REACTIONS (15)
  - BLOOD CREATININE INCREASED [None]
  - COMA [None]
  - CONFUSIONAL STATE [None]
  - DISORIENTATION [None]
  - DRUG TOXICITY [None]
  - LETHARGY [None]
  - MENTAL STATUS CHANGES [None]
  - METABOLIC DISORDER [None]
  - MYOCLONUS [None]
  - PSEUDOMONAS INFECTION [None]
  - RASH MACULO-PAPULAR [None]
  - SKIN EXFOLIATION [None]
  - SPINAL HAEMATOMA [None]
  - STATUS EPILEPTICUS [None]
  - THERAPY NON-RESPONDER [None]
